FAERS Safety Report 8102755 (Version 3)
Quarter: 2013Q2

REPORT INFORMATION
  Report Type: Report from Study
  Country: JP (occurrence: JP)
  Receive Date: 20110823
  Receipt Date: 20130401
  Transmission Date: 20140414
  Serious: Yes (Hospitalization, Other)
  Sender: FDA-Public Use
  Company Number: JP-ABBOTT-11P-087-0847444-00

PATIENT
  Age: 31 Year
  Sex: Female
  Weight: 42 kg

DRUGS (6)
  1. HUMIRA 40 MG/ 0.8 ML PRE-FILLED SYRINGE [Suspect]
     Indication: CROHN^S DISEASE
     Route: 058
     Dates: start: 20101119, end: 20101119
  2. HUMIRA 40 MG/ 0.8 ML PRE-FILLED SYRINGE [Suspect]
     Dates: start: 20101203, end: 20101203
  3. HUMIRA 40 MG/ 0.8 ML PRE-FILLED SYRINGE [Suspect]
     Dates: start: 20101217, end: 20110218
  4. MESALAZINE [Concomitant]
     Indication: CROHN^S DISEASE
     Route: 048
  5. PREDNISOLONE [Concomitant]
     Indication: CROHN^S DISEASE
     Route: 048
  6. ENTERAL NUTRITION [Concomitant]
     Indication: CROHN^S DISEASE

REACTIONS (2)
  - Hypoalbuminaemia [Recovered/Resolved]
  - Small intestinal resection [Unknown]
